FAERS Safety Report 9919627 (Version 1)
Quarter: 2014Q1

REPORT INFORMATION
  Report Type: Spontaneous
  Country: US (occurrence: US)
  Receive Date: 20140224
  Receipt Date: 20140224
  Transmission Date: 20141002
  Serious: Yes (Other)
  Sender: FDA-Public Use
  Company Number: US-BAYER-2014-022921

PATIENT
  Age: 65 Year
  Sex: Male

DRUGS (2)
  1. MOXIFLOXACIN ORAL [Suspect]
     Dosage: UNK
  2. VANCOMYCIN [Concomitant]
     Indication: STAPHYLOCOCCAL INFECTION

REACTIONS (3)
  - Hypersensitivity vasculitis [None]
  - Glomerulonephritis acute [None]
  - Renal failure [None]
